FAERS Safety Report 14768566 (Version 1)
Quarter: 2018Q2

REPORT INFORMATION
  Report Type: Spontaneous
  Country: IT (occurrence: IT)
  Receive Date: 20180417
  Receipt Date: 20180417
  Transmission Date: 20180711
  Serious: Yes (Hospitalization)
  Sender: FDA-Public Use
  Company Number: IT-TEVA-2018-IT-880966

PATIENT
  Age: 33 Year
  Sex: Female

DRUGS (2)
  1. FLUOXETINA [Suspect]
     Active Substance: FLUOXETINE HYDROCHLORIDE
     Indication: DRUG ABUSE
     Route: 048
  2. EN [Suspect]
     Active Substance: DELORAZEPAM
     Indication: DRUG ABUSE
     Route: 048

REACTIONS (2)
  - Drug abuse [Unknown]
  - Bradyphrenia [Unknown]

NARRATIVE: CASE EVENT DATE: 20160808
